FAERS Safety Report 6396527-6 (Version None)
Quarter: 2009Q4

REPORT INFORMATION
  Report Type: 
  Country: None (occurrence: None)
  Receive Date: 20091012
  Receipt Date: 20091007
  Transmission Date: 20100525
  Serious: Yes (Life-Threatening, Hospitalization, Disabling)
  Sender: FDA-Public Use
  Company Number: NZ-ASTRAZENECA-2003AP00165

PATIENT
  Age: 70 Year
  Sex: Female

DRUGS (8)
  1. PULMICORT [Suspect]
     Indication: ASTHMA
     Dosage: LONG TERM USE
     Route: 055
  2. PULMICORT [Interacting]
     Dosage: LONG TERM USE
     Route: 055
     Dates: end: 20020701
  3. SPORANOX [Interacting]
     Indication: FUNGAL INFECTION
     Dates: start: 20020301, end: 20020501
  4. SPORANOX [Interacting]
     Indication: CELLULITIS
     Dates: start: 20020301, end: 20020501
  5. DILTIAZEM [Interacting]
     Indication: ESSENTIAL HYPERTENSION
     Route: 048
     Dates: end: 20060601
  6. PREDNISOLONE [Concomitant]
     Indication: ASTHMA
     Route: 065
     Dates: end: 19800101
  7. BENDROFLUAZIDE [Concomitant]
     Route: 065
  8. TERBUTALINE SULFATE [Concomitant]
     Dosage: AS REQUIRED
     Route: 055

REACTIONS (2)
  - CUSHING'S SYNDROME [None]
  - DRUG INTERACTION [None]
